FAERS Safety Report 5695099-9 (Version None)
Quarter: 2008Q2

REPORT INFORMATION
  Report Type: 
  Country: None (occurrence: None)
  Receive Date: 20080404
  Receipt Date: 20080325
  Transmission Date: 20081010
  Serious: Yes (Other)
  Sender: FDA-Public Use
  Company Number: FR-PFIZER INC-2008018642

PATIENT
  Sex: Female
  Weight: 44 kg

DRUGS (4)
  1. RELPAX [Suspect]
     Indication: MIGRAINE
     Route: 048
  2. ASPEGIC 1000 [Concomitant]
     Route: 048
  3. ACETAMINOPHEN [Concomitant]
     Route: 048
  4. MIGPRIV [Concomitant]
     Route: 048

REACTIONS (3)
  - PROCTALGIA [None]
  - PROCTITIS [None]
  - RECTAL HAEMORRHAGE [None]
